FAERS Safety Report 10969901 (Version 1)
Quarter: 2015Q1

REPORT INFORMATION
  Report Type: Other
  Country: GB (occurrence: GB)
  Receive Date: 20150331
  Receipt Date: 20150331
  Transmission Date: 20150721
  Serious: Yes (Death)
  Sender: FDA-Public Use
  Company Number: GB-MYLANLABS-2015M1008900

PATIENT

DRUGS (5)
  1. VENLAFAXINE HYDROCHLORIDE. [Suspect]
     Active Substance: VENLAFAXINE HYDROCHLORIDE
     Indication: PANIC ATTACK
  2. VENLAFAXINE HYDROCHLORIDE. [Suspect]
     Active Substance: VENLAFAXINE HYDROCHLORIDE
     Indication: ANXIETY
     Dosage: UNK
     Dates: start: 2003, end: 201308
  3. VENLAFAXINE HYDROCHLORIDE. [Suspect]
     Active Substance: VENLAFAXINE HYDROCHLORIDE
     Indication: MENTAL DISORDER
     Dosage: UNK
  4. DIAZEPAM. [Suspect]
     Active Substance: DIAZEPAM
     Dosage: UNK
     Dates: start: 201402
  5. VENLAFAXINE HYDROCHLORIDE. [Suspect]
     Active Substance: VENLAFAXINE HYDROCHLORIDE
     Indication: DEPRESSION
     Dosage: UNK (DOSE REDUCED)
     Dates: start: 201403

REACTIONS (3)
  - Suicidal ideation [Fatal]
  - Panic attack [Fatal]
  - Completed suicide [Fatal]

NARRATIVE: CASE EVENT DATE: 20140316
